FAERS Safety Report 6258866-9 (Version None)
Quarter: 2009Q3

REPORT INFORMATION
  Report Type: 
  Country: None (occurrence: None)
  Receive Date: 20090707
  Receipt Date: 20090630
  Transmission Date: 20100115
  Serious: Yes (Hospitalization)
  Sender: FDA-Public Use
  Company Number: CA-BRISTOL-MYERS SQUIBB COMPANY-14612055

PATIENT
  Age: 53 Year
  Sex: Female

DRUGS (13)
  1. ABATACEPT [Suspect]
     Indication: CROHN'S DISEASE
     Dosage: THERAPY DATES: 12OCT07-06DEC07(4 COURSES),07JAN08-27FEB(3 COURSES),07MAR08-08APR09
     Route: 042
     Dates: start: 20071012, end: 20090408
  2. METFORMIN [Concomitant]
     Dates: start: 20080617, end: 20090501
  3. AMITRIPTYLINE [Concomitant]
     Dates: start: 20020410
  4. CELEBREX [Concomitant]
     Dates: start: 20050629
  5. PREDNISONE [Concomitant]
     Dates: start: 20070101
  6. VITAMIN B-12 [Concomitant]
     Dates: start: 20000101
  7. NEXIUM [Concomitant]
     Dates: start: 20070418
  8. CALCIUM [Concomitant]
     Dates: start: 20070417
  9. VITAMIN D [Concomitant]
     Dates: start: 20070417
  10. LORAZEPAM [Concomitant]
     Dates: start: 20070417
  11. VENOFER [Concomitant]
     Dates: start: 20071101
  12. PURINETHOL [Concomitant]
     Dates: start: 19920101
  13. ATIVAN [Concomitant]
     Dates: start: 20070411

REACTIONS (2)
  - CLOSTRIDIUM DIFFICILE TOXIN TEST [None]
  - CROHN'S DISEASE [None]
